FAERS Safety Report 25054688 (Version 2)
Quarter: 2025Q2

REPORT INFORMATION
  Report Type: Report from Study
  Country: CA (occurrence: CA)
  Receive Date: 20250308
  Receipt Date: 20250619
  Transmission Date: 20250717
  Serious: Yes (Hospitalization, Other)
  Sender: ABBVIE
  Company Number: CA-ABBVIE-6161095

PATIENT
  Age: 19 Year
  Sex: Female

DRUGS (1)
  1. SKYRIZI [Suspect]
     Active Substance: RISANKIZUMAB-RZAA
     Indication: Crohn^s disease
     Route: 058

REACTIONS (8)
  - Intestinal obstruction [Unknown]
  - Ileostomy [Unknown]
  - Frequent bowel movements [Unknown]
  - Stoma closure [Unknown]
  - Weight increased [Unknown]
  - Abdominal pain [Unknown]
  - Vomiting [Unknown]
  - Gastrointestinal stoma output decreased [Unknown]

NARRATIVE: CASE EVENT DATE: 20250101
